FAERS Safety Report 6821592-9 (Version None)
Quarter: 2010Q3

REPORT INFORMATION
  Report Type: 
  Country: None (occurrence: None)
  Receive Date: 20100707
  Receipt Date: 20090618
  Transmission Date: 20110219
  Serious: No
  Sender: FDA-Public Use
  Company Number: US-PFIZER INC-2009171986

PATIENT
  Sex: Female

DRUGS (8)
  1. ZOLOFT [Suspect]
     Indication: DEPRESSION
     Dosage: UNK
     Route: 048
     Dates: start: 20090120
  2. DARIFENACIN HYDROBROMIDE [Concomitant]
     Dosage: UNK
  3. MOBIC [Concomitant]
     Dosage: UNK
  4. ATIVAN [Concomitant]
     Dosage: UNK
  5. CALCIUM CARBONATE [Concomitant]
     Dosage: UNK
  6. CALCITONIN [Concomitant]
     Dosage: UNK
  7. AMBIEN [Concomitant]
     Dosage: UNK
  8. THYROID [Concomitant]
     Dosage: UNK

REACTIONS (1)
  - RESTLESS LEGS SYNDROME [None]
